FAERS Safety Report 10686129 (Version 7)
Quarter: 2015Q1

REPORT INFORMATION
  Report Type: Spontaneous
  Country: US (occurrence: US)
  Receive Date: 20141231
  Receipt Date: 20150302
  Transmission Date: 20150720
  Serious: Yes (Other)
  Sender: FDA-Public Use
  Company Number: US-UNITED THERAPEUTICS-UNT-2014-012635

PATIENT
  Age: 61 Year
  Sex: Female
  Weight: 43.84 kg

DRUGS (4)
  1. TYVASO [Suspect]
     Active Substance: TREPROSTINIL
     Indication: PULMONARY ARTERIAL HYPERTENSION
     Dosage: 18-54 ?G, QID
     Dates: start: 20141024
  2. LETAIRIS [Suspect]
     Active Substance: AMBRISENTAN
     Indication: PRODUCT USED FOR UNKNOWN INDICATION
     Dosage: 5 MG, QD
     Dates: start: 20140829
  3. TYVASO [Suspect]
     Active Substance: TREPROSTINIL
     Dosage: 18-54 ?G, QID
  4. TYVASO [Suspect]
     Active Substance: TREPROSTINIL
     Indication: PULMONARY HYPERTENSION
     Dosage: 18-54 ?G, QID
     Dates: start: 20141211

REACTIONS (9)
  - Vision blurred [Unknown]
  - Cough [Unknown]
  - Eye pain [Unknown]
  - Retinal disorder [Unknown]
  - Dizziness [Unknown]
  - Eye disorder [Unknown]
  - Therapy cessation [Unknown]
  - Dyspnoea exertional [Unknown]
  - Headache [Unknown]

NARRATIVE: CASE EVENT DATE: 201412
